FAERS Safety Report 14957416 (Version 1)
Quarter: 2018Q2

REPORT INFORMATION
  Report Type: Spontaneous
  Country: FR (occurrence: FR)
  Receive Date: 20180531
  Receipt Date: 20180531
  Transmission Date: 20180711
  Serious: Yes (Hospitalization)
  Sender: FDA-Public Use
  Company Number: FR-ASTRAZENECA-2018SE68662

PATIENT
  Age: 21 Year
  Sex: Female

DRUGS (3)
  1. LEXOMIL ROCHE [Suspect]
     Active Substance: BROMAZEPAM
     Route: 048
  2. XEROQUEL [Suspect]
     Active Substance: QUETIAPINE FUMARATE
     Route: 048
  3. SERESTA [Suspect]
     Active Substance: OXAZEPAM
     Route: 048

REACTIONS (1)
  - Drug dependence [Unknown]

NARRATIVE: CASE EVENT DATE: 2012
